FAERS Safety Report 7811096-9 (Version None)
Quarter: 2011Q4

REPORT INFORMATION
  Report Type: 
  Country: None (occurrence: None)
  Receive Date: 20111012
  Receipt Date: 20111012
  Transmission Date: 20120403
  Serious: Yes (Hospitalization)
  Sender: FDA-Public Use
  Company Number: None

PATIENT
  Sex: Female
  Weight: 60.32 kg

DRUGS (2)
  1. TAXOL [Suspect]
     Dosage: 278 MG
     Dates: end: 20110923
  2. CARBOPLATIN [Suspect]
     Dosage: 600 MG
     Dates: end: 20110916

REACTIONS (5)
  - LEUKOPENIA [None]
  - PNEUMONIA [None]
  - PLEURAL EFFUSION [None]
  - THROMBOCYTOPENIA [None]
  - CONFUSIONAL STATE [None]
